FAERS Safety Report 8958588 (Version 2)
Quarter: 2013Q1

REPORT INFORMATION
  Report Type: Spontaneous
  Country: US (occurrence: None)
  Receive Date: 20121203
  Receipt Date: 20130128
  Transmission Date: 20140127
  Serious: Yes (Other)
  Sender: FDA-Public Use
  Company Number: JPI-P-026422

PATIENT
  Age: 38 Year
  Sex: Female
  Weight: 65.32 kg

DRUGS (17)
  1. XYREM (500 MILLIGRAM/MILLILITERS, SOLUTION) (SODIUM OXYBATE) [Suspect]
     Indication: CATAPLEXY
     Route: 048
     Dates: start: 201112
  2. GABAPENTIN [Concomitant]
     Dates: start: 201208
  3. OXYCONTIN [Suspect]
     Dates: start: 201112
  4. AMITRYIPTYLINE [Concomitant]
     Dates: start: 201201
  5. ARMODAFINIL [Suspect]
  6. OXYCODONE [Concomitant]
  7. LAMOTRIGINE [Concomitant]
  8. OXCARBAZEPINE [Concomitant]
  9. OMEPRAZOLE [Concomitant]
  10. NAPROXEN [Concomitant]
  11. ONDANSETRON HYDROCHLORIDE [Concomitant]
  12. PROPRANOLOL ER 60 MG [Concomitant]
  13. TOPIRAMATE [Concomitant]
  14. DIAZEPAM [Concomitant]
  15. DIFLUCAN [Concomitant]
  16. MODAFINIL [Concomitant]
  17. LACTULOSE [Concomitant]

REACTIONS (23)
  - Overdose [None]
  - Periorbital oedema [None]
  - Fatigue [None]
  - Somnolence [None]
  - Initial insomnia [None]
  - Middle insomnia [None]
  - Asthenia [None]
  - Memory impairment [None]
  - Nausea [None]
  - Vomiting [None]
  - Malaise [None]
  - Dry mouth [None]
  - Muscle spasms [None]
  - Face injury [None]
  - Tremor [None]
  - Heart rate increased [None]
  - Somnambulism [None]
  - Fall [None]
  - Dysgeusia [None]
  - Hyperhidrosis [None]
  - Unresponsive to stimuli [None]
  - Respiratory arrest [None]
  - Snoring [None]
